FAERS Safety Report 6153824-7 (Version None)
Quarter: 2009Q2

REPORT INFORMATION
  Report Type: 
  Country: None (occurrence: None)
  Receive Date: 20090414
  Receipt Date: 20090401
  Transmission Date: 20091009
  Serious: Yes (Other)
  Sender: FDA-Public Use
  Company Number: GB-RANBAXY-2009RR-23214

PATIENT
  Sex: Female

DRUGS (6)
  1. METFORMIN HCL [Suspect]
     Indication: DIABETES MELLITUS
     Dosage: 500 MG, TID
     Route: 048
     Dates: start: 20070212
  2. SIMVASTATIN [Suspect]
     Dosage: 10 MG, UNK
     Route: 065
     Dates: start: 20040901
  3. CALCICHEW D3 [Concomitant]
     Dosage: UNK
     Route: 048
  4. FOSAVANCE [Concomitant]
     Dosage: UNK
     Route: 048
  5. GAVISCON [Concomitant]
     Dosage: 20 ML, QID
     Route: 048
  6. PARACETAMOL [Concomitant]
     Dosage: 500 MG, QID
     Route: 048

REACTIONS (2)
  - ALOPECIA [None]
  - DIARRHOEA [None]
